FAERS Safety Report 22627107 (Version 1)
Quarter: 2023Q2

REPORT INFORMATION
  Report Type: Spontaneous
  Country: US (occurrence: US)
  Receive Date: 20230622
  Receipt Date: 20230622
  Transmission Date: 20230722
  Serious: No
  Sender: FDA-Public Use
  Company Number: US-ABBVIE-5299716

PATIENT
  Sex: Female

DRUGS (1)
  1. OXYTROL [Suspect]
     Active Substance: OXYBUTYNIN
     Indication: Product used for unknown indication
     Dosage: 3.9MG/D 8

REACTIONS (3)
  - Pollakiuria [Not Recovered/Not Resolved]
  - Device physical property issue [Unknown]
  - Drug ineffective [Unknown]
